FAERS Safety Report 11164509 (Version 1)
Quarter: 2015Q2

REPORT INFORMATION
  Report Type: Spontaneous
  Country: US (occurrence: US)
  Receive Date: 20150604
  Receipt Date: 20150604
  Transmission Date: 20150821
  Serious: Yes (Death, Other)
  Sender: FDA-Public Use
  Company Number: US-TEVA-567795USA

PATIENT
  Age: 79 Year
  Sex: Female

DRUGS (2)
  1. IMMUNE GLOBULIN [Concomitant]
     Active Substance: HUMAN IMMUNOGLOBULIN G
     Indication: STEVENS-JOHNSON SYNDROME
     Route: 042
  2. METHYLPREDNISOLONE. [Suspect]
     Active Substance: METHYLPREDNISOLONE
     Indication: STEVENS-JOHNSON SYNDROME
     Route: 065

REACTIONS (5)
  - Bronchopulmonary aspergillosis [Fatal]
  - Disseminated intravascular coagulation [Fatal]
  - Encephalopathy [Unknown]
  - Acute kidney injury [Unknown]
  - Multi-organ failure [Fatal]
